FAERS Safety Report 18933408 (Version 1)
Quarter: 2021Q1

REPORT INFORMATION
  Report Type: Other
  Country: IN (occurrence: IN)
  Receive Date: 20210224
  Receipt Date: 20210224
  Transmission Date: 20210420
  Serious: Yes (Other)
  Sender: FDA-Public Use
  Company Number: IN-ROCHE-2774704

PATIENT

DRUGS (1)
  1. BEVACIZUMAB. [Suspect]
     Active Substance: BEVACIZUMAB
     Indication: GLIOBLASTOMA
     Dosage: EVERY 2?3 WEEKS
     Route: 065

REACTIONS (11)
  - Diarrhoea [Unknown]
  - Myelosuppression [Unknown]
  - Transaminases increased [Unknown]
  - Haemorrhage [Unknown]
  - Fatigue [Unknown]
  - Febrile neutropenia [Unknown]
  - Thrombosis [Unknown]
  - Dyslipidaemia [Unknown]
  - Proteinuria [Unknown]
  - Hypertension [Unknown]
  - Hypersensitivity [Unknown]
